FAERS Safety Report 19441220 (Version 1)
Quarter: 2021Q2

REPORT INFORMATION
  Report Type: Spontaneous
  Country: US (occurrence: US)
  Receive Date: 20210617
  Receipt Date: 20210617
  Transmission Date: 20210717
  Serious: Yes (Other)
  Sender: FDA-Public Use
  Company Number: None

PATIENT
  Age: 53 Year
  Sex: Male
  Weight: 74.25 kg

DRUGS (5)
  1. PEMIGATINIB [Suspect]
     Active Substance: PEMIGATINIB
     Indication: CHOLANGIOCARCINOMA
     Dosage: ?          OTHER FREQUENCY:DAILY D1?14 OF 21D;?
     Route: 048
     Dates: start: 20201120
  2. LEVOTHYROXINE 150 MCG TABLETS [Concomitant]
  3. MIRALAX [Concomitant]
     Active Substance: POLYETHYLENE GLYCOL 3350
  4. SEVELAMER 800 MG TABLETS [Concomitant]
  5. LEXAPRO 20 MG TABLETS [Concomitant]

REACTIONS (1)
  - Leukoencephalopathy [None]

NARRATIVE: CASE EVENT DATE: 20210325
